FAERS Safety Report 17915821 (Version 1)
Quarter: 2020Q2

REPORT INFORMATION
  Report Type: Spontaneous
  Country: JP (occurrence: JP)
  Receive Date: 20200619
  Receipt Date: 20200619
  Transmission Date: 20200714
  Serious: Yes (Hospitalization)
  Sender: FDA-Public Use
  Company Number: NVSJ2020JP001564

PATIENT
  Age: 77 Year
  Sex: Male

DRUGS (6)
  1. CARVEDILOLO [Concomitant]
     Active Substance: CARVEDILOL
     Indication: MYOCARDIAL ISCHAEMIA
     Dosage: 2.5 MG
     Route: 048
  2. ONBREZ INHALATION CAPSUL [Suspect]
     Active Substance: INDACATEROL
     Indication: CHRONIC OBSTRUCTIVE PULMONARY DISEASE
     Dosage: UNK MG
     Route: 055
  3. AZOSEMIDE [Concomitant]
     Active Substance: AZOSEMIDE
     Indication: MYOCARDIAL ISCHAEMIA
     Dosage: 30 MG
     Route: 048
  4. LIXIANA [Concomitant]
     Active Substance: EDOXABAN TOSYLATE
     Indication: MYOCARDIAL ISCHAEMIA
     Dosage: 30 MG
     Route: 048
  5. ONBREZ INHALATION CAPSUL [Suspect]
     Active Substance: INDACATEROL
     Dosage: UNK MG
     Route: 048
  6. ROSUVASTATIN. [Concomitant]
     Active Substance: ROSUVASTATIN
     Indication: MYOCARDIAL ISCHAEMIA
     Dosage: 2.5 MG
     Route: 048

REACTIONS (2)
  - Acute myocardial infarction [Recovering/Resolving]
  - Incorrect route of product administration [Recovered/Resolved]

NARRATIVE: CASE EVENT DATE: 20200203
